FAERS Safety Report 5917599-6 (Version None)
Quarter: 2008Q4

REPORT INFORMATION
  Report Type: 
  Country: None (occurrence: None)
  Receive Date: 20081014
  Receipt Date: 20081003
  Transmission Date: 20090506
  Serious: Yes (Other)
  Sender: FDA-Public Use
  Company Number: BR-BAYER-200818998LA

PATIENT
  Age: 31 Year
  Sex: Female
  Weight: 48 kg

DRUGS (2)
  1. YAZ [Suspect]
     Indication: ORAL CONTRACEPTION
     Route: 048
     Dates: start: 20070101
  2. SANDOMIGRAN [Concomitant]
     Indication: MIGRAINE
     Route: 048
     Dates: start: 20080913

REACTIONS (2)
  - INCREASED APPETITE [None]
  - SOMNOLENCE [None]
